FAERS Safety Report 21447012 (Version 1)
Quarter: 2022Q4

REPORT INFORMATION
  Report Type: Report from Study
  Country: US (occurrence: US)
  Receive Date: 20221012
  Receipt Date: 20221012
  Transmission Date: 20230113
  Serious: Yes (Hospitalization)
  Sender: FDA-Public Use
  Company Number: US-BRISTOL-MYERS SQUIBB COMPANY-2022-118506

PATIENT
  Age: 58 Year
  Sex: Female
  Weight: 85 kg

DRUGS (2)
  1. IPILIMUMAB [Suspect]
     Active Substance: IPILIMUMAB
     Indication: Perivascular epithelioid cell tumour
     Dosage: 1 MG/KG (85 MG).
     Route: 065
     Dates: start: 20200630, end: 20200714
  2. NIVOLUMAB [Suspect]
     Active Substance: NIVOLUMAB
     Indication: Perivascular epithelioid cell tumour
     Route: 065
     Dates: start: 20200630, end: 20200714

REACTIONS (2)
  - Pyrexia [Recovering/Resolving]
  - Palpitations [Recovering/Resolving]

NARRATIVE: CASE EVENT DATE: 20200713
